FAERS Safety Report 8771182 (Version 3)
Quarter: 2012Q4

REPORT INFORMATION
  Report Type: 
  Country: IE (occurrence: IE)
  Receive Date: 20120906
  Receipt Date: 20121129
  Transmission Date: 20130627
  Serious: Yes (Other)
  Sender: FDA-Public Use
  Company Number: IE-ALLERGAN-1212119US

PATIENT
  Age: 33 Year
  Sex: Female

DRUGS (4)
  1. OZURDEX [Suspect]
     Indication: UVEITIS
     Dosage: 0.7 mg, single
     Route: 031
     Dates: start: 20120814, end: 20120814
  2. METHOTREXATE [Concomitant]
     Indication: DRUG USE FOR UNKNOWN INDICATION
     Dosage: 10 mg, weekly
  3. ARAVA [Concomitant]
     Indication: DRUG USE FOR UNKNOWN INDICATION
  4. XANAX [Concomitant]
     Indication: DRUG USE FOR UNKNOWN INDICATION
     Dosage: used just on morning of injection
     Dates: start: 20120814, end: 20120814

REACTIONS (6)
  - Visual acuity reduced [Recovered/Resolved]
  - Impaired healing [Recovered/Resolved]
  - Scleral disorder [Recovered/Resolved]
  - Eye disorder [Recovered/Resolved]
  - Seidel test positive [Recovered/Resolved]
  - Hypotony of eye [Recovered/Resolved]
